FAERS Safety Report 7680454-8 (Version None)
Quarter: 2011Q3

REPORT INFORMATION
  Report Type: 
  Country: None (occurrence: None)
  Receive Date: 20110812
  Receipt Date: 20110801
  Transmission Date: 20111222
  Serious: Yes (Hospitalization)
  Sender: FDA-Public Use
  Company Number: US-JNJFOC-20070300603

PATIENT
  Sex: Male
  Weight: 38.3 kg

DRUGS (4)
  1. MESALAMINE [Concomitant]
     Route: 048
  2. AZATHIOPRINE [Concomitant]
  3. INFLIXIMAB [Suspect]
     Indication: INFLAMMATORY BOWEL DISEASE
     Route: 042
     Dates: start: 20060831
  4. INFLIXIMAB [Suspect]
     Dosage: TOTAL 2 DOSES
     Route: 042
     Dates: start: 20060913

REACTIONS (1)
  - COLITIS ULCERATIVE [None]
